FAERS Safety Report 17679635 (Version 12)
Quarter: 2022Q1

REPORT INFORMATION
  Report Type: Report from Study
  Country: US (occurrence: US)
  Receive Date: 20200417
  Receipt Date: 20220316
  Transmission Date: 20220424
  Serious: Yes (Other)
  Sender: FDA-Public Use
  Company Number: NVSC2020US101240

PATIENT
  Sex: Female
  Weight: 58.957 kg

DRUGS (8)
  1. TREPROSTINIL [Suspect]
     Active Substance: TREPROSTINIL
     Indication: Pulmonary arterial hypertension
     Dosage: 2.5 MG/ML
     Route: 042
     Dates: start: 20190418
  2. TREPROSTINIL [Suspect]
     Active Substance: TREPROSTINIL
     Dosage: 45 NG/KG/MIN
     Route: 042
  3. TREPROSTINIL [Suspect]
     Active Substance: TREPROSTINIL
     Dosage: 40 NG/KG/MIN, CONT
     Route: 042
  4. TREPROSTINIL [Suspect]
     Active Substance: TREPROSTINIL
     Dosage: 40 NG/KG/MIN, CONT
     Route: 042
  5. TREPROSTINIL [Suspect]
     Active Substance: TREPROSTINIL
     Dosage: UNK UNK, (40 NG/KG/MIN), CONT
     Route: 042
  6. AMBRISENTAN [Suspect]
     Active Substance: AMBRISENTAN
     Indication: Product used for unknown indication
     Dosage: UNK
     Route: 065
  7. TADALAFIL [Suspect]
     Active Substance: TADALAFIL
     Indication: Product used for unknown indication
     Dosage: UNK
     Route: 065
  8. ASPIRIN [Suspect]
     Active Substance: ASPIRIN
     Indication: Product used for unknown indication
     Dosage: LOW DOSE
     Route: 065

REACTIONS (15)
  - Scleroderma [Unknown]
  - Haemorrhage [Unknown]
  - Device dislocation [Unknown]
  - Splenomegaly [Unknown]
  - Hepatomegaly [Unknown]
  - Incontinence [Unknown]
  - Dyspnoea [Unknown]
  - Nervous system disorder [Unknown]
  - Exercise tolerance decreased [Unknown]
  - Stoma site extravasation [Unknown]
  - Oedema peripheral [Unknown]
  - Abdominal distension [Unknown]
  - Cardiac disorder [Unknown]
  - Skin haemorrhage [Unknown]
  - Infusion related reaction [Unknown]
